FAERS Safety Report 8323400-6 (Version None)
Quarter: 2012Q2

REPORT INFORMATION
  Report Type: 
  Country: None (occurrence: None)
  Receive Date: 20120430
  Receipt Date: 20120422
  Transmission Date: 20120825
  Serious: Yes (Hospitalization, Other)
  Sender: FDA-Public Use
  Company Number: US-AMGEN-USASP2011063460

PATIENT
  Age: 44 Year
  Sex: Female

DRUGS (2)
  1. ENBREL [Suspect]
     Indication: RHEUMATOID ARTHRITIS
     Dosage: UNK
     Dates: start: 20061120
  2. ENBREL [Suspect]
     Dosage: 50 MG, QWK
     Dates: start: 20060101

REACTIONS (14)
  - ACCIDENT [None]
  - SINUSITIS [None]
  - BRONCHITIS [None]
  - ANKLE FRACTURE [None]
  - SUTURE RUPTURE [None]
  - RHEUMATOID ARTHRITIS [None]
  - FOOT OPERATION [None]
  - INTERVERTEBRAL DISC PROTRUSION [None]
  - SPINAL COLUMN INJURY [None]
  - POST PROCEDURAL HAEMORRHAGE [None]
  - INTERVERTEBRAL DISC COMPRESSION [None]
  - INTERVERTEBRAL DISC DEGENERATION [None]
  - BACK PAIN [None]
  - INFLUENZA LIKE ILLNESS [None]
